FAERS Safety Report 19165754 (Version 1)
Quarter: 2021Q2

REPORT INFORMATION
  Report Type: Spontaneous
  Country: US (occurrence: US)
  Receive Date: 20210422
  Receipt Date: 20210422
  Transmission Date: 20210717
  Serious: No
  Sender: FDA-Public Use
  Company Number: US-GLAXOSMITHKLINE-USCH2021021621

PATIENT

DRUGS (1)
  1. VOLTAREN ARTHRITIS PAIN [Suspect]
     Active Substance: DICLOFENAC SODIUM
     Indication: BACK PAIN
     Dosage: UNK

REACTIONS (9)
  - Rash [Unknown]
  - Eye swelling [Unknown]
  - Lacrimation increased [Unknown]
  - Lip pruritus [Unknown]
  - Product used for unknown indication [Unknown]
  - Lip swelling [Unknown]
  - Eye pruritus [Unknown]
  - Drug hypersensitivity [Unknown]
  - Emergency care examination [Unknown]
